FAERS Safety Report 20736814 (Version 1)
Quarter: 2022Q2

REPORT INFORMATION
  Report Type: Spontaneous
  Country: US (occurrence: US)
  Receive Date: 20220421
  Receipt Date: 20220421
  Transmission Date: 20220720
  Serious: No
  Sender: FDA-Public Use
  Company Number: US-Kiniksa Pharmaceuticals Ltd.-2022KPU000057

PATIENT
  Age: 48 Year
  Sex: Female

DRUGS (6)
  1. ARCALYST [Suspect]
     Active Substance: RILONACEPT
     Indication: Product used for unknown indication
     Route: 058
     Dates: start: 20220103
  2. IBUPROFEN [Concomitant]
     Active Substance: IBUPROFEN
     Indication: Product used for unknown indication
  3. COLCHICINE [Concomitant]
     Active Substance: COLCHICINE
     Indication: Product used for unknown indication
     Route: 048
  4. Daily Vitamin and Calcium [Concomitant]
     Indication: Product used for unknown indication
  5. ESTRADIOL [Concomitant]
     Active Substance: ESTRADIOL
     Indication: Product used for unknown indication
  6. NITROGLYCERIN [Concomitant]
     Active Substance: NITROGLYCERIN
     Indication: Chest pain

REACTIONS (18)
  - Headache [Unknown]
  - Injection site rash [Unknown]
  - Rash [Unknown]
  - Injection site bruising [Unknown]
  - Chest pain [Unknown]
  - Dyspnoea [Unknown]
  - Heart rate irregular [Unknown]
  - Injection site swelling [Unknown]
  - Injection site bruising [Unknown]
  - Injection site mass [Recovering/Resolving]
  - Injection site rash [Unknown]
  - Chest discomfort [Unknown]
  - Chest discomfort [Unknown]
  - Syncope [Unknown]
  - Palpitations [Unknown]
  - Hypoaesthesia [Unknown]
  - Injection site erythema [Unknown]
  - Paraesthesia [Unknown]

NARRATIVE: CASE EVENT DATE: 20220103
